FAERS Safety Report 8831974 (Version 1)
Quarter: 2012Q4

REPORT INFORMATION
  Report Type: 
  Country: MA (occurrence: MA)
  Receive Date: 20121009
  Receipt Date: 20121009
  Transmission Date: 20130627
  Serious: Yes (Other)
  Sender: FDA-Public Use
  Company Number: MA-ROCHE-1142919

PATIENT
  Sex: Female

DRUGS (1)
  1. LUCENTIS [Suspect]
     Indication: AGE-RELATED MACULAR DEGENERATION
     Route: 050

REACTIONS (1)
  - Retinal haemorrhage [Unknown]
